FAERS Safety Report 19714945 (Version 1)
Quarter: 2021Q3

REPORT INFORMATION
  Report Type: Spontaneous
  Country: CN (occurrence: CN)
  Receive Date: 20210818
  Receipt Date: 20210818
  Transmission Date: 20211014
  Serious: Yes (Hospitalization, Other)
  Sender: FDA-Public Use
  Company Number: CN-JNJFOC-20210833329

PATIENT
  Age: 40 Year
  Sex: Female
  Weight: 70 kg

DRUGS (1)
  1. XARELTO [Suspect]
     Active Substance: RIVAROXABAN
     Indication: THROMBOSIS PROPHYLAXIS
     Dosage: 2 DF, QD
     Route: 048
     Dates: start: 20190701, end: 20210704

REACTIONS (3)
  - Portal hypertensive gastropathy [Unknown]
  - Varices oesophageal [Unknown]
  - Haematemesis [Recovered/Resolved]

NARRATIVE: CASE EVENT DATE: 20210703
